FAERS Safety Report 13861650 (Version 1)
Quarter: 2017Q3

REPORT INFORMATION
  Report Type: Spontaneous
  Country: GB (occurrence: GB)
  Receive Date: 20170811
  Receipt Date: 20170811
  Transmission Date: 20171127
  Serious: Yes (Other)
  Sender: FDA-Public Use
  Company Number: GB-TERSERA THERAPEUTICS, LLC-2024525

PATIENT
  Age: 24 Year
  Sex: Female

DRUGS (2)
  1. ZOLADEX [Suspect]
     Active Substance: GOSERELIN ACETATE
     Indication: MENORRHAGIA
     Route: 058
     Dates: start: 20170511
  2. LEUPRORELIN ACETATE [Suspect]
     Active Substance: LEUPROLIDE ACETATE
     Route: 065
     Dates: start: 20150908

REACTIONS (8)
  - Facial paralysis [Unknown]
  - Dysarthria [Unknown]
  - Off label use [Unknown]
  - Hepatic steatosis [Unknown]
  - Hypoaesthesia [Unknown]
  - Hepatic enzyme abnormal [Unknown]
  - Peripheral swelling [Unknown]
  - Facial paresis [Unknown]

NARRATIVE: CASE EVENT DATE: 20170616
